FAERS Safety Report 10244787 (Version 1)
Quarter: 2014Q2

REPORT INFORMATION
  Report Type: Spontaneous
  Country: ZA (occurrence: ZA)
  Receive Date: 20140618
  Receipt Date: 20140618
  Transmission Date: 20141212
  Serious: Yes (Other)
  Sender: FDA-Public Use
  Company Number: ZA-ELI_LILLY_AND_COMPANY-ZA201406002774

PATIENT
  Age: 42 Year
  Sex: Female

DRUGS (1)
  1. HUMALOG 25% LISPRO, 75% NPL [Suspect]
     Indication: GESTATIONAL DIABETES
     Dosage: 10 U, EACH EVENING
     Route: 065
     Dates: start: 20140605

REACTIONS (3)
  - Pericardial effusion [Unknown]
  - Wheezing [Unknown]
  - Maternal exposure during pregnancy [Recovered/Resolved]
